FAERS Safety Report 22290594 (Version 1)
Quarter: 2023Q2

REPORT INFORMATION
  Report Type: Spontaneous
  Country: US (occurrence: US)
  Receive Date: 20230505
  Receipt Date: 20230505
  Transmission Date: 20230721
  Serious: No
  Sender: FDA-Public Use
  Company Number: US-GALDERMA-US2023006141

PATIENT

DRUGS (5)
  1. PROACTIV MD ADAPALENE ACNE TREATMENT [Suspect]
     Active Substance: ADAPALENE
     Indication: Acne
     Dosage: 1 DOSAGE FORM, ONLY AT NIGHT, UST ENOUGH TO COVER FACE, NOT A WHOLE LOT
     Route: 061
     Dates: start: 202212, end: 202304
  2. Proactiv MD Ultra Gentle Cleanser [Concomitant]
     Indication: Acne
     Dosage: 1 DOSAGE FORM, BID, 2 OR MORE TIMES A DAY, PRETTY MUCH JUST ENOUGH TO COVER FACE
     Route: 061
     Dates: start: 202212, end: 202304
  3. Proactiv MD Ultra Hydrating Moisturizer [Concomitant]
     Indication: Acne
     Dosage: 1 DOSAGE FORM, BID, 2 OR MORE TIMES A DAY, PRETTY MUCH JUST ENOUGH TO COVER FACE
     Route: 061
     Dates: start: 202212, end: 202304
  4. Proactiv Post Acne Dark Mark Relief [Concomitant]
     Indication: Acne
     Dosage: 1 DOSAGE FORM, BID, 2 OR MORE TIMES A DAY, PRETTY MUCH JUST ENOUGH TO COVER FACE
     Route: 061
     Dates: start: 202212, end: 202304
  5. Proactiv Post Acne Scar Gel [Concomitant]
     Indication: Acne
     Dosage: 1 DOSAGE FORM, BID, 2 OR MORE TIMES A DAY, PRETTY MUCH JUST ENOUGH TO COVER FACE
     Route: 061
     Dates: start: 202212, end: 202304

REACTIONS (3)
  - Skin burning sensation [Recovering/Resolving]
  - Dry skin [Recovering/Resolving]
  - Drug ineffective [Recovering/Resolving]

NARRATIVE: CASE EVENT DATE: 20221201
